FAERS Safety Report 16048300 (Version 2)
Quarter: 2019Q2

REPORT INFORMATION
  Report Type: Spontaneous
  Country: US (occurrence: US)
  Receive Date: 20190307
  Receipt Date: 20190424
  Transmission Date: 20190711
  Serious: Yes (Hospitalization, Other)
  Sender: FDA-Public Use
  Company Number: US-PFIZER INC-2019087362

PATIENT
  Age: 33 Year
  Sex: Female
  Weight: 61.22 kg

DRUGS (1)
  1. LIOTHYRONINE SODIUM. [Suspect]
     Active Substance: LIOTHYRONINE SODIUM
     Indication: HYPOTHYROIDISM
     Dosage: 50 UG, 2X/DAY
     Route: 048
     Dates: start: 20180428, end: 20180728

REACTIONS (7)
  - Headache [Not Recovered/Not Resolved]
  - Adrenal disorder [Unknown]
  - Thyroid function test abnormal [Unknown]
  - Product dispensing error [Unknown]
  - Endocrine disorder [Unknown]
  - Accidental overdose [Recovered/Resolved]
  - Bradycardia [Unknown]

NARRATIVE: CASE EVENT DATE: 2018
